FAERS Safety Report 7455881-4 (Version None)
Quarter: 2011Q2

REPORT INFORMATION
  Report Type: 
  Country: None (occurrence: None)
  Receive Date: 20110503
  Receipt Date: 20110426
  Transmission Date: 20111010
  Serious: Yes (Death)
  Sender: FDA-Public Use
  Company Number: A0925206A

PATIENT
  Sex: Male

DRUGS (2)
  1. VENTOLIN [Suspect]
  2. ADVAIR DISKUS 100/50 [Suspect]
     Route: 055
     Dates: start: 20100217

REACTIONS (1)
  - DEATH [None]
